FAERS Safety Report 8841639 (Version 2)
Quarter: 2013Q4

REPORT INFORMATION
  Report Type: Spontaneous
  Country: US (occurrence: US)
  Receive Date: 20121015
  Receipt Date: 20131105
  Transmission Date: 20140711
  Serious: Yes (Other)
  Sender: FDA-Public Use
  Company Number: US-PFIZER INC-2012221209

PATIENT
  Age: 53 Year
  Sex: Male

DRUGS (26)
  1. ZOLOFT [Suspect]
     Dosage: 50 MG 1 TABLET NIGHTLY
     Route: 048
  2. VIAGRA [Suspect]
     Indication: ERECTILE DYSFUNCTION
     Dosage: 100 MG NEEDED
     Route: 048
  3. PROTONIX [Suspect]
     Dosage: 40 MG, 1X/DAY EVERY MORNING BEFORE BREAKFAST
     Route: 048
  4. ACCUPRIL [Suspect]
     Dosage: 20 MG, 1X/DAY
     Route: 048
  5. SPIRIVA [Suspect]
     Dosage: 18 UG, DAILY
     Route: 055
  6. CRESTOR [Concomitant]
     Dosage: 10 MG, 1X/DAY EVERY EVENING
     Route: 048
  7. FLEXERIL [Concomitant]
     Indication: MUSCLE SPASMS
     Dosage: 10 MG, 3 TIMES DAILY, AS NEEDED
     Route: 048
  8. TRICOR [Concomitant]
     Dosage: 145 MG, DAILY
     Route: 048
  9. ADVIL [Concomitant]
     Indication: PAIN
     Dosage: 800 MG, 2 TIMES DAILY, AS NEEDED
     Route: 048
  10. MOTRIN [Concomitant]
     Indication: PAIN
     Dosage: 800 MG, 2 TIMES DAILY, AS NEEDED
     Route: 048
  11. KOMBIGLYZE XR [Concomitant]
     Dosage: 2.5- 1000 MG PER TABLET, DAILY WITH DINNER
     Route: 048
  12. SYNTHROID [Concomitant]
     Dosage: 100 UG, 1 1/2 TAB 2 DAYS A WEEK, 1 TAB ALL OTHER DAYS
     Route: 048
  13. LEVOTHROID [Concomitant]
     Dosage: 00 UG, 1 1/2 TAB 2 DAYS A WEEK, 1 TAB ALL OTHER DAYS
     Route: 048
  14. NEXIUM [Concomitant]
     Dosage: 40 MG, 1X/DAY EVERY MORNING BEFORE BREAKFAST
     Route: 048
  15. STRATTERA [Concomitant]
     Dosage: 40 MG, DAILY
     Route: 048
  16. VITAMIN D3 [Concomitant]
     Dosage: 5000 IU, DAILY
     Route: 048
  17. ELAVIL [Concomitant]
     Dosage: 50 MG, 1X/DAY, NIGHTLY
  18. CYMBALTA [Concomitant]
     Dosage: 30 MG, DAILY
  19. VASOTEC [Concomitant]
     Dosage: 20 MG, DAILY
  20. PROVENTIL /OLD FORM/ [Concomitant]
     Indication: WHEEZING
     Dosage: 2 PUFFS INTO THE LUNGS EVERY 6 HOURS
     Route: 055
  21. SYMBICORT [Concomitant]
     Dosage: 2 PUFFS INTO THE LUNGS 2 (TWO) TIMES DAILY
     Route: 055
  22. NORCO [Concomitant]
     Dosage: 7.5-325 MG TWICE DAILY
     Route: 048
  23. PRILOSEC [Concomitant]
     Indication: GASTROOESOPHAGEAL REFLUX DISEASE
     Dosage: 20 MG, DAILY
     Route: 048
  24. DULERA [Concomitant]
     Dosage: 200-5MCG, 2 PUFS 2 TIMES DAILY
     Route: 055
  25. VENTOLIN [Concomitant]
     Indication: WHEEZING
     Dosage: 2 PUFFS INTO THE LUNGS EVERY 6 HOURS
     Route: 055
  26. RISPERDAL [Concomitant]
     Dosage: 1 MG, DAILY NIGHTLY
     Route: 048

REACTIONS (17)
  - Bipolar I disorder [Unknown]
  - Hip arthroplasty [Unknown]
  - Depression [Unknown]
  - Essential hypertension [Unknown]
  - Chronic obstructive pulmonary disease [Unknown]
  - Diabetes mellitus inadequate control [Unknown]
  - Gastrooesophageal reflux disease [Unknown]
  - Arthralgia [Unknown]
  - Tobacco user [Unknown]
  - Hypothyroidism [Unknown]
  - Insomnia [Unknown]
  - Attention deficit/hyperactivity disorder [Unknown]
  - Erectile dysfunction [Unknown]
  - Blood cholesterol increased [Unknown]
  - Vitamin D deficiency [Unknown]
  - Neck pain [Unknown]
  - Rhinitis allergic [Unknown]
